FAERS Safety Report 17822721 (Version 1)
Quarter: 2020Q2

REPORT INFORMATION
  Report Type: Report from Study
  Country: None (occurrence: US)
  Receive Date: 20200526
  Receipt Date: 20200526
  Transmission Date: 20200714
  Serious: Yes (Hospitalization, Other)
  Sender: FDA-Public Use
  Company Number: US-ABBVIE-20K-163-3417245-00

PATIENT
  Age: 25 Year
  Sex: Female

DRUGS (2)
  1. HUMIRA [Suspect]
     Active Substance: ADALIMUMAB
     Route: 058
     Dates: start: 202002, end: 20200508
  2. HUMIRA [Suspect]
     Active Substance: ADALIMUMAB
     Indication: CROHN^S DISEASE
     Route: 058
     Dates: start: 2018, end: 201911

REACTIONS (6)
  - Gastrointestinal inflammation [Unknown]
  - Pyrexia [Unknown]
  - Constipation [Unknown]
  - Drug specific antibody present [Unknown]
  - Knee operation [Unknown]
  - Vomiting [Unknown]

NARRATIVE: CASE EVENT DATE: 201911
